FAERS Safety Report 4515399-5 (Version None)
Quarter: 2004Q4

REPORT INFORMATION
  Report Type: 
  Country: None (occurrence: None)
  Receive Date: 20041126
  Receipt Date: 20041110
  Transmission Date: 20050328
  Serious: Yes (Hospitalization)
  Sender: FDA-Public Use
  Company Number: 2004091211

PATIENT
  Age: 69 Year
  Sex: Male

DRUGS (16)
  1. DOXAZOSIN MESYLATE [Suspect]
     Indication: ILL-DEFINED DISORDER
     Dates: end: 20040213
  2. TELMISARTAN (TELMISARTAN) [Suspect]
     Indication: ILL-DEFINED DISORDER
     Dates: start: 20040109
  3. METOPROLOL TARTRATE [Suspect]
     Indication: ILL-DEFINED DISORDER
     Dates: start: 20040107
  4. FUROSEMIDE [Suspect]
     Indication: ILL-DEFINED DISORDER
     Dates: start: 20040107
  5. SPIRONOLACTONE [Suspect]
     Indication: ILL-DEFINED DISORDER
     Dates: end: 20040213
  6. PREDNISONE [Concomitant]
  7. SIROLIMUS (SIROLIMUS) [Concomitant]
  8. ASPIRIN [Concomitant]
  9. INSULIN INJECTION,ISOPHANE (INSULIN INJECTION) [Concomitant]
  10. INSULIN LISPRO (INSULIN LISPRO) [Concomitant]
  11. FLUOXETINE HYDROCHLORIDE [Concomitant]
  12. ATORVASTATIN (ATORVASTATIN) [Concomitant]
  13. NICOTINIC ACID [Concomitant]
  14. POTASSIUM CHLORIDE [Concomitant]
  15. SILDENAFIL CITRATE (SILDENAFIL CITRATE) [Concomitant]
  16. RABEPRAZOLE SODIUM [Concomitant]

REACTIONS (2)
  - HYPOTENSION [None]
  - RENAL FAILURE ACUTE [None]
